FAERS Safety Report 16877444 (Version 6)
Quarter: 2019Q4

REPORT INFORMATION
  Report Type: Spontaneous
  Country: US (occurrence: US)
  Receive Date: 20191002
  Receipt Date: 20191216
  Transmission Date: 20200122
  Serious: No
  Sender: FDA-Public Use
  Company Number: US-PFIZER INC-2019409002

PATIENT
  Sex: Female

DRUGS (1)
  1. KERYDIN [Suspect]
     Active Substance: TAVABOROLE
     Indication: ONYCHOMYCOSIS
     Dosage: UNK, 1X/DAY (ASSUMES THAT DOSE WAS 1 DROP ONCE A DAY FOR EACH INFECTED TOE)
     Route: 061

REACTIONS (2)
  - Nail discolouration [Unknown]
  - Skin discolouration [Unknown]
